FAERS Safety Report 7610335-7 (Version None)
Quarter: 2011Q3

REPORT INFORMATION
  Report Type: 
  Country: None (occurrence: None)
  Receive Date: 20110707
  Receipt Date: 20110629
  Transmission Date: 20111222
  Serious: Yes (Hospitalization)
  Sender: FDA-Public Use
  Company Number: DE-2011-1000

PATIENT
  Age: 63 Year
  Sex: Male
  Weight: 62.1 kg

DRUGS (5)
  1. NAVELBINE [Suspect]
     Indication: NON-SMALL CELL LUNG CANCER
     Dosage: 20 MG/M2, IV
     Route: 042
     Dates: start: 20110322, end: 20110329
  2. VERGENTAN [Concomitant]
  3. CISPLATIN [Suspect]
     Indication: NON-SMALL CELL LUNG CANCER
     Dosage: 50 MG/M2, IV
     Route: 042
     Dates: start: 20110113, end: 20110329
  4. PACLITAXEL [Concomitant]
  5. DEXAMETHASONE [Concomitant]

REACTIONS (1)
  - DYSPHAGIA [None]
